FAERS Safety Report 24610780 (Version 4)
Quarter: 2025Q1

REPORT INFORMATION
  Report Type: Spontaneous
  Country: JP (occurrence: JP)
  Receive Date: 20241112
  Receipt Date: 20250206
  Transmission Date: 20250409
  Serious: Yes (Other)
  Sender: MERCK
  Company Number: JP-MSD-2411JPN000585J

PATIENT
  Age: 55 Year
  Sex: Male

DRUGS (2)
  1. KEYTRUDA [Suspect]
     Active Substance: PEMBROLIZUMAB
     Indication: Lung adenocarcinoma
     Route: 065
  2. KEYTRUDA [Suspect]
     Active Substance: PEMBROLIZUMAB
     Route: 065

REACTIONS (1)
  - Acquired tracheo-oesophageal fistula [Unknown]
